FAERS Safety Report 8618803 (Version 2)
Quarter: 2012Q4

REPORT INFORMATION
  Report Type: 
  Country: DE (occurrence: DE)
  Receive Date: 20120618
  Receipt Date: 20121015
  Transmission Date: 20130627
  Serious: Yes (Congenital Anomaly)
  Sender: FDA-Public Use
  Company Number: DE-ELI_LILLY_AND_COMPANY-DE201206001554

PATIENT

DRUGS (1)
  1. CYMBALTA [Suspect]
     Indication: DEPRESSION
     Dosage: 60 mg, qd
     Route: 064
     Dates: start: 20110602

REACTIONS (2)
  - Congenital hydronephrosis [Recovered/Resolved]
  - Foetal exposure during pregnancy [Recovered/Resolved]
